FAERS Safety Report 9052351 (Version 1)
Quarter: 2013Q1

REPORT INFORMATION
  Report Type: Spontaneous
  Country: US (occurrence: US)
  Receive Date: 20130206
  Receipt Date: 20130206
  Transmission Date: 20140127
  Serious: Yes (Hospitalization, Other)
  Sender: FDA-Public Use
  Company Number: US-TEVA-383643USA

PATIENT
  Sex: Male

DRUGS (3)
  1. AMPHETAMINE W/DEXTROAMPHETAMINE [Suspect]
  2. RISPERDAL [Concomitant]
  3. WELLBUTRIN [Concomitant]

REACTIONS (20)
  - Drug dependence [Unknown]
  - Major depression [Unknown]
  - Psychotic disorder [Unknown]
  - Brain injury [Unknown]
  - Homicidal ideation [Unknown]
  - Drug abuse [Unknown]
  - Palpitations [Unknown]
  - Depression [Unknown]
  - Decreased interest [Unknown]
  - Anxiety [Unknown]
  - Personality change [Unknown]
  - Hallucination [Unknown]
  - Aggression [Unknown]
  - Irritability [Unknown]
  - Obsessive thoughts [Unknown]
  - Panic attack [Unknown]
  - Heart rate irregular [Unknown]
  - Heart rate increased [Unknown]
  - Paranoia [Unknown]
  - Confusional state [Unknown]
